FAERS Safety Report 7817511-9 (Version None)
Quarter: 2011Q4

REPORT INFORMATION
  Report Type: 
  Country: None (occurrence: None)
  Receive Date: 20111017
  Receipt Date: 20110923
  Transmission Date: 20120403
  Serious: Yes (Other)
  Sender: FDA-Public Use
  Company Number: US-ROCHE-1004421

PATIENT
  Age: 63 Year
  Sex: Female

DRUGS (2)
  1. KLONOPIN [Suspect]
     Indication: BORDERLINE PERSONALITY DISORDER
     Route: 048
  2. RISPERIDONE [Concomitant]

REACTIONS (2)
  - DEMENTIA [None]
  - CATARACT OPERATION [None]
